FAERS Safety Report 8568013-6 (Version None)
Quarter: 2012Q3

REPORT INFORMATION
  Report Type: 
  Country: None (occurrence: None)
  Receive Date: 20120803
  Receipt Date: 20111121
  Transmission Date: 20120928
  Serious: No
  Sender: FDA-Public Use
  Company Number: US-ABBOTT-11P-163-0877186-00

PATIENT
  Sex: Female
  Weight: 54.48 kg

DRUGS (7)
  1. CONJUGATED ESTROGENS [Suspect]
     Indication: HYSTERECTOMY
  2. ZOCOR [Concomitant]
     Indication: PRODUCT USED FOR UNKNOWN INDICATION
  3. NIASPAN [Suspect]
     Indication: BLOOD TRIGLYCERIDES INCREASED
     Dates: start: 20110901
  4. ZYRTEC [Concomitant]
     Indication: PRODUCT USED FOR UNKNOWN INDICATION
  5. HYDROCHLOROTHIAZDE TAB [Concomitant]
     Indication: HYPERTENSION
  6. NIASPAN [Suspect]
     Indication: LOW DENSITY LIPOPROTEIN INCREASED
  7. ASPIRIN [Concomitant]
     Indication: PRODUCT USED FOR UNKNOWN INDICATION

REACTIONS (4)
  - TACHYCARDIA [None]
  - SKIN BURNING SENSATION [None]
  - HYPERTENSION [None]
  - DIZZINESS [None]
